FAERS Safety Report 5090203-8 (Version None)
Quarter: 2006Q3

REPORT INFORMATION
  Report Type: 
  Country: None (occurrence: None)
  Receive Date: 20060828
  Receipt Date: 20060808
  Transmission Date: 20061208
  Serious: Yes (Life-Threatening)
  Sender: FDA-Public Use
  Company Number: FR-GLAXOSMITHKLINE-B0434311A

PATIENT
  Age: 54 Year
  Sex: Male

DRUGS (5)
  1. DEROXAT [Suspect]
     Route: 048
  2. SERESTA [Concomitant]
     Dosage: 3UNIT PER DAY
  3. CLOMIPRAMINE HCL [Concomitant]
     Dosage: .5UNIT PER DAY
  4. ATARAX [Concomitant]
     Dosage: 100MG PER DAY
     Route: 048
  5. ZOLPIDEM [Concomitant]
     Dosage: 1UNIT PER DAY

REACTIONS (15)
  - AGITATION [None]
  - ASPARTATE AMINOTRANSFERASE INCREASED [None]
  - BLOOD CREATINE PHOSPHOKINASE INCREASED [None]
  - COMA [None]
  - EXTENSOR PLANTAR RESPONSE [None]
  - GRAND MAL CONVULSION [None]
  - HAEMORRHAGE [None]
  - HYPERTHERMIA [None]
  - MUSCULOSKELETAL STIFFNESS [None]
  - MYDRIASIS [None]
  - OVERDOSE [None]
  - RHABDOMYOLYSIS [None]
  - STUPOR [None]
  - TONGUE BITING [None]
  - URINARY INCONTINENCE [None]
